FAERS Safety Report 16636078 (Version 3)
Quarter: 2019Q4

REPORT INFORMATION
  Report Type: Spontaneous
  Country: US (occurrence: US)
  Receive Date: 20190726
  Receipt Date: 20191114
  Transmission Date: 20200122
  Serious: Yes (Hospitalization)
  Sender: FDA-Public Use
  Company Number: US-PFIZER INC-2019321543

PATIENT
  Age: 87 Year
  Sex: Female
  Weight: 77 kg

DRUGS (3)
  1. CELECOXIB. [Suspect]
     Active Substance: CELECOXIB
     Dosage: 1 DF, 1X/DAY (1 PILL BEFORE SLEEP)
  2. CELECOXIB. [Suspect]
     Active Substance: CELECOXIB
     Dosage: UNK
     Dates: start: 20190615
  3. CELECOXIB. [Suspect]
     Active Substance: CELECOXIB
     Dosage: 1 DF, 1X/DAY
     Dates: start: 20190612, end: 201906

REACTIONS (4)
  - Vomiting [Recovered/Resolved]
  - Pain in extremity [Not Recovered/Not Resolved]
  - Back pain [Not Recovered/Not Resolved]
  - Muscle spasms [Not Recovered/Not Resolved]

NARRATIVE: CASE EVENT DATE: 20190612
